FAERS Safety Report 4961081-X (Version None)
Quarter: 2006Q1

REPORT INFORMATION
  Report Type: 
  Country: None (occurrence: None)
  Receive Date: 20060127
  Receipt Date: 20050902
  Transmission Date: 20060701
  Serious: Yes (Hospitalization, Other)
  Sender: FDA-Public Use
  Company Number: 2005-US-00043

PATIENT
  Age: 40 Year
  Sex: Female
  Weight: 80.7403 kg

DRUGS (4)
  1. CLOZAPINE [Suspect]
     Indication: SCHIZOPHRENIA
     Dosage: 150 MG, QD, ORAL
     Route: 048
     Dates: start: 20050606, end: 20050831
  2. VALPROATE SODIUM [Concomitant]
  3. AMANTADINE HCL [Concomitant]
  4. FLUPHENAZINE DECANOATE [Concomitant]

REACTIONS (1)
  - CONVULSION [None]
